FAERS Safety Report 5847058-0 (Version None)
Quarter: 2008Q3

REPORT INFORMATION
  Report Type: 
  Country: None (occurrence: None)
  Receive Date: 20080815
  Receipt Date: 20080804
  Transmission Date: 20090109
  Serious: Yes (Other)
  Sender: FDA-Public Use
  Company Number: US-PFIZER INC-2008065933

PATIENT
  Sex: Female
  Weight: 51.3 kg

DRUGS (1)
  1. LYRICA [Suspect]
     Indication: NERVE INJURY
     Dates: start: 20080619, end: 20080619

REACTIONS (9)
  - ABDOMINAL PAIN UPPER [None]
  - BRUXISM [None]
  - EMOTIONAL DISORDER [None]
  - EUPHORIC MOOD [None]
  - FEELING ABNORMAL [None]
  - HALLUCINATION [None]
  - ILL-DEFINED DISORDER [None]
  - TOOTH FRACTURE [None]
  - TREMOR [None]
